FAERS Safety Report 8379726-3 (Version None)
Quarter: 2012Q2

REPORT INFORMATION
  Report Type: 
  Country: None (occurrence: None)
  Receive Date: 20120523
  Receipt Date: 20120517
  Transmission Date: 20120825
  Serious: Yes (Other)
  Sender: FDA-Public Use
  Company Number: US-PURDUE-USA-2012-0082359

PATIENT
  Sex: Female

DRUGS (3)
  1. ALCOHOL [Suspect]
     Indication: SUBSTANCE ABUSE
  2. OXYCONTIN [Suspect]
     Dosage: 20 MG, Q12H
     Route: 048
  3. OXYCONTIN [Suspect]
     Indication: PRODUCT USED FOR UNKNOWN INDICATION
     Dosage: 60 MG, Q12H
     Route: 048

REACTIONS (5)
  - VERTIGO [None]
  - DIZZINESS [None]
  - SUBSTANCE ABUSE [None]
  - INTENTIONAL DRUG MISUSE [None]
  - DEAFNESS [None]
